FAERS Safety Report 4296963-8 (Version None)
Quarter: 2004Q1

REPORT INFORMATION
  Report Type: 
  Country: None (occurrence: None)
  Receive Date: 20040213
  Receipt Date: 20040130
  Transmission Date: 20041129
  Serious: Yes (Death, Hospitalization)
  Sender: FDA-Public Use
  Company Number: 2004-06625

PATIENT
  Age: 57 Year
  Sex: Male
  Weight: 62 kg

DRUGS (19)
  1. TENOFOVIR DF [Suspect]
     Indication: HIV INFECTION
     Dosage: 300 MG QD PO
     Route: 048
     Dates: start: 20020528, end: 20040127
  2. INDINAVIR [Concomitant]
  3. ENFUVIRTIDE [Concomitant]
  4. KALETRA [Concomitant]
  5. DDI [Concomitant]
  6. PROPRANOLOL [Concomitant]
  7. MORPHINE [Concomitant]
  8. APO-SULFATRIM [Concomitant]
  9. FOLIC ACID [Concomitant]
  10. TRAZODONE HCL [Concomitant]
  11. ZOPLICONE [Concomitant]
  12. VITAMIN B6 [Concomitant]
  13. SAIZEN [Concomitant]
  14. TESTOSTERONE [Concomitant]
  15. CARBIDOPA AND LEVODOPA [Concomitant]
  16. CRESTOR [Concomitant]
  17. CENTRUM [Concomitant]
  18. VITAMIN B-12 [Concomitant]
  19. ZOFRAN [Concomitant]

REACTIONS (7)
  - ACUTE RESPIRATORY DISTRESS SYNDROME [None]
  - BLOOD PRESSURE DECREASED [None]
  - CARDIAC DISORDER [None]
  - HYPERKALAEMIA [None]
  - PULMONARY OEDEMA [None]
  - RENAL FAILURE [None]
  - SEPSIS [None]
